FAERS Safety Report 25952601 (Version 1)
Quarter: 2025Q4

REPORT INFORMATION
  Report Type: Spontaneous
  Country: US (occurrence: US)
  Receive Date: 20251023
  Receipt Date: 20251023
  Transmission Date: 20260118
  Serious: Yes (Hospitalization, Other)
  Sender: CB FLEET
  Company Number: US-PRESTIGE-202510-US-003475

PATIENT
  Age: 58 Year
  Sex: Female

DRUGS (1)
  1. BC ARTHRITIS [Suspect]
     Active Substance: ASPIRIN\CAFFEINE
     Indication: Arthritis
     Dosage: I WAS TAKING 3 A DAY I WAS TAKING IN THE MORNING AT 2PM AND AT NIGHT.   I TOOK THIS DOSE FOR A FEW M
     Route: 048

REACTIONS (5)
  - Toxicity to various agents [Recovered/Resolved]
  - Essential hypertension [Recovered/Resolved]
  - Disorientation [Recovered/Resolved]
  - Hypoglycaemia [Recovered/Resolved]
  - Incorrect product administration duration [None]
